FAERS Safety Report 8975870 (Version 1)
Quarter: 2012Q4

REPORT INFORMATION
  Report Type: 
  Country: IT (occurrence: IT)
  Receive Date: 20121219
  Receipt Date: 20121219
  Transmission Date: 20130627
  Serious: Yes (Hospitalization)
  Sender: FDA-Public Use
  Company Number: IT-TEVA-375632ISR

PATIENT
  Age: 89 Year
  Sex: Female

DRUGS (4)
  1. CEFTRIAXONE [Suspect]
     Dosage: 500 Milligram Daily;
     Route: 048
     Dates: start: 20121130, end: 20121201
  2. LASIX [Concomitant]
  3. COMBISARTAN [Concomitant]
  4. LENDORMIN [Concomitant]

REACTIONS (4)
  - Pyrexia [Unknown]
  - Hypotension [Unknown]
  - Oxygen saturation decreased [Unknown]
  - Neurological decompensation [Unknown]
